FAERS Safety Report 7450848-4 (Version None)
Quarter: 2011Q2

REPORT INFORMATION
  Report Type: 
  Country: None (occurrence: None)
  Receive Date: 20110422
  Receipt Date: 20110408
  Transmission Date: 20111010
  Serious: Yes (Hospitalization)
  Sender: FDA-Public Use
  Company Number: WAES 1103GBR00075

PATIENT
  Age: 63 Year
  Sex: Female

DRUGS (3)
  1. TAB LAROPIPRANT (+) NIACIN [Suspect]
     Indication: HIGH DENSITY LIPOPROTEIN DECREASED
     Dosage: 2 GM, DAILY, PO
     Route: 048
     Dates: start: 20100125, end: 20110312
  2. ASPIRIN [Concomitant]
  3. VYTORIN [Suspect]
     Indication: BLOOD CHOLESTEROL ABNORMAL
     Dosage: 10/40 MG DAILY, PO
     Route: 048
     Dates: start: 20091019, end: 20110312

REACTIONS (2)
  - ACUTE MYELOID LEUKAEMIA [None]
  - PANCYTOPENIA [None]
